FAERS Safety Report 8306451-7 (Version None)
Quarter: 2012Q2

REPORT INFORMATION
  Report Type: 
  Country: None (occurrence: None)
  Receive Date: 20120424
  Receipt Date: 20120419
  Transmission Date: 20120825
  Serious: Yes (Hospitalization, Other)
  Sender: FDA-Public Use
  Company Number: AU-AMGEN-AUSSP2012009498

PATIENT
  Age: 91 Year
  Sex: Female

DRUGS (5)
  1. CYCLOPHOSPHAMIDE [Concomitant]
  2. FLUOROURACIL [Suspect]
     Indication: CHEMOTHERAPY
     Dosage: UNK
  3. DOCETAXEL [Concomitant]
  4. NEULASTA [Suspect]
     Indication: CHEMOTHERAPY
     Dosage: UNK
     Dates: start: 20111119
  5. EPIRUBICIN [Concomitant]

REACTIONS (5)
  - COLITIS ULCERATIVE [None]
  - INFECTION [None]
  - INFLAMMATORY BOWEL DISEASE [None]
  - NEUTROPHIL COUNT INCREASED [None]
  - HOSPITALISATION [None]
